FAERS Safety Report 8719692 (Version 2)
Quarter: 2013Q1

REPORT INFORMATION
  Report Type: Spontaneous
  Country: US (occurrence: US)
  Receive Date: 20120813
  Receipt Date: 20130102
  Transmission Date: 20140127
  Serious: Yes (Hospitalization)
  Sender: FDA-Public Use
  Company Number: US-BAYER-2012-079257

PATIENT
  Age: 30 Year
  Sex: Female

DRUGS (3)
  1. YAZ [Suspect]
     Dosage: UNK
     Dates: start: 200709, end: 20071212
  2. ALBUTEROL [Concomitant]
     Route: 045
  3. MINOCYCLINE [Concomitant]
     Dosage: 100 MG, UNK

REACTIONS (1)
  - Pulmonary embolism [None]
